FAERS Safety Report 5204111-2 (Version None)
Quarter: 2007Q1

REPORT INFORMATION
  Report Type: 
  Country: None (occurrence: None)
  Receive Date: 20070110
  Receipt Date: 20051129
  Transmission Date: 20070707
  Serious: Yes (Other)
  Sender: FDA-Public Use
  Company Number: US-BRISTOL-MYERS SQUIBB COMPANY-13196944

PATIENT
  Age: 11 Year
  Sex: Male
  Weight: 45 kg

DRUGS (3)
  1. ABILIFY [Suspect]
     Indication: ATTENTION DEFICIT/HYPERACTIVITY DISORDER
     Dosage: INITIAL DOSE 5 MG X 1 WEEK
     Route: 048
  2. CONCERTA [Concomitant]
  3. SEROQUEL [Concomitant]

REACTIONS (1)
  - DYSTONIA [None]
